FAERS Safety Report 4866059-2 (Version None)
Quarter: 2005Q4

REPORT INFORMATION
  Report Type: 
  Country: None (occurrence: None)
  Receive Date: 20051221
  Receipt Date: 20051207
  Transmission Date: 20060501
  Serious: Yes (Other)
  Sender: FDA-Public Use
  Company Number: US016435

PATIENT
  Age: 48 Year
  Sex: Male

DRUGS (5)
  1. PROVIGIL [Suspect]
     Indication: SOMNOLENCE
     Dosage: 200 MG QD ORAL
     Route: 048
     Dates: start: 20050925, end: 20051122
  2. TRAMADOL HCL [Concomitant]
  3. DICYCLOMINE [Concomitant]
  4. SYNTHROID [Concomitant]
  5. REMERON [Concomitant]

REACTIONS (8)
  - APATHY [None]
  - COMPLEX PARTIAL SEIZURES [None]
  - CONVULSION [None]
  - DECREASED APPETITE [None]
  - EPILEPSY [None]
  - PNEUMATOSIS INTESTINALIS [None]
  - SMALL INTESTINAL PERFORATION [None]
  - SOMNOLENCE [None]
